FAERS Safety Report 4769134-6 (Version None)
Quarter: 2005Q3

REPORT INFORMATION
  Report Type: 
  Country: None (occurrence: None)
  Receive Date: 20050913
  Receipt Date: 20050901
  Transmission Date: 20060218
  Serious: Yes (Death, Life-Threatening, Hospitalization)
  Sender: FDA-Public Use
  Company Number: 2005116362

PATIENT
  Age: 70 Year
  Sex: Female
  Weight: 75 kg

DRUGS (7)
  1. LYRICA [Suspect]
     Indication: BACK PAIN
     Dosage: 150 MG (75 MG, 2 IN 1 D), ORAL
     Route: 048
     Dates: start: 20050715, end: 20050718
  2. LYRICA [Suspect]
     Indication: NEUROPATHIC PAIN
     Dosage: 150 MG (75 MG, 2 IN 1 D), ORAL
     Route: 048
     Dates: start: 20050715, end: 20050718
  3. ZOCOR [Concomitant]
  4. STILNOCT (ZOLPIDEM TARTRATE) [Concomitant]
  5. PRIMASPAN (ACETYLSALICYLIC ACID) [Concomitant]
  6. SERETIDE (FLUTICASONE PROPIONATE, SALMETEROL XINAFOATE) [Concomitant]
  7. EMCONCOR (BISOPROLOL) [Concomitant]

REACTIONS (14)
  - ANAEMIA [None]
  - BIOPSY KIDNEY ABNORMAL [None]
  - BRAIN OEDEMA [None]
  - CEREBRAL HAEMORRHAGE [None]
  - DIALYSIS [None]
  - DYSPHONIA [None]
  - DYSPNOEA [None]
  - FATIGUE [None]
  - LOSS OF CONSCIOUSNESS [None]
  - OEDEMA PERIPHERAL [None]
  - PULMONARY CONGESTION [None]
  - RENAL FAILURE ACUTE [None]
  - RENAL TUBULAR DISORDER [None]
  - TIC [None]
